FAERS Safety Report 16703248 (Version 1)
Quarter: 2019Q3

REPORT INFORMATION
  Report Type: Spontaneous
  Country: US (occurrence: US)
  Receive Date: 20190628
  Receipt Date: 20190628
  Transmission Date: 20191004
  Serious: Yes (Hospitalization)
  Sender: FDA-Public Use
  Company Number: None

PATIENT
  Age: 62 Year
  Sex: Female

DRUGS (6)
  1. REPATHA [Suspect]
     Active Substance: EVOLOCUMAB
     Route: 058
  2. TEMAZEPAM. [Concomitant]
     Active Substance: TEMAZEPAM
  3. EZETIMIBE. [Concomitant]
     Active Substance: EZETIMIBE
  4. METOPROL SC [Concomitant]
  5. VITAMIN D [Concomitant]
     Active Substance: VITAMIN D NOS
  6. DIAZEPAM. [Concomitant]
     Active Substance: DIAZEPAM

REACTIONS (3)
  - Myocardial haemorrhage [None]
  - Therapy cessation [None]
  - Memory impairment [None]

NARRATIVE: CASE EVENT DATE: 20190508
